FAERS Safety Report 9068868 (Version 1)
Quarter: 2013Q1

REPORT INFORMATION
  Report Type: Spontaneous
  Country: US (occurrence: None)
  Receive Date: 20130212
  Receipt Date: 20130212
  Transmission Date: 20140127
  Serious: Yes (Other)
  Sender: FDA-Public Use
  Company Number: None

PATIENT
  Age: 64 Year
  Sex: Female

DRUGS (1)
  1. AFINITOR 5MG NOVARTIS [Suspect]
     Indication: BREAST CANCER
     Route: 048
     Dates: start: 20121029, end: 20130128

REACTIONS (2)
  - Cough [None]
  - Lung infection [None]
